FAERS Safety Report 7158030-5 (Version None)
Quarter: 2010Q4

REPORT INFORMATION
  Report Type: 
  Country: None (occurrence: None)
  Receive Date: 20101214
  Receipt Date: 20100413
  Transmission Date: 20110411
  Serious: No
  Sender: FDA-Public Use
  Company Number: US-ASTRAZENECA-2010SE16192

PATIENT
  Age: 55 Year
  Sex: Female
  Weight: 74.8 kg

DRUGS (6)
  1. CRESTOR [Suspect]
     Indication: OSTEOARTHRITIS
     Route: 048
     Dates: start: 20100219, end: 20100221
  2. CRESTOR [Suspect]
     Indication: OSTEOPOROSIS
     Route: 048
     Dates: start: 20100219, end: 20100221
  3. CRESTOR [Suspect]
     Route: 048
     Dates: start: 20100222, end: 20100318
  4. CRESTOR [Suspect]
     Route: 048
     Dates: start: 20100222, end: 20100318
  5. CRESTOR [Suspect]
     Route: 048
     Dates: start: 20100319
  6. CRESTOR [Suspect]
     Route: 048
     Dates: start: 20100319

REACTIONS (5)
  - CHEST PAIN [None]
  - HYPOAESTHESIA [None]
  - MUSCULAR WEAKNESS [None]
  - MYALGIA [None]
  - PAIN IN EXTREMITY [None]
